FAERS Safety Report 19739266 (Version 1)
Quarter: 2021Q3

REPORT INFORMATION
  Report Type: Report from Study
  Country: DE (occurrence: DE)
  Receive Date: 20210823
  Receipt Date: 20210823
  Transmission Date: 20211014
  Serious: Yes (Hospitalization, Other)
  Sender: FDA-Public Use
  Company Number: DE-MYLANLABS-2021M1053735

PATIENT
  Age: 62 Year
  Sex: Female

DRUGS (17)
  1. PREGABALIN. [Concomitant]
     Active Substance: PREGABALIN
     Dosage: 50 MILLIGRAM
  2. ALENDRONIC ACID [Concomitant]
     Active Substance: ALENDRONIC ACID
     Dosage: UNK
  3. PREDNISOLONE. [Suspect]
     Active Substance: PREDNISOLONE
     Dosage: 2.5 MILLIGRAM, QD
     Route: 048
  4. ROACTEMRA [Suspect]
     Active Substance: TOCILIZUMAB
     Indication: RHEUMATOID ARTHRITIS
     Dosage: 162 MILLIGRAM, QW
     Route: 058
     Dates: start: 20140620
  5. ROACTEMRA [Suspect]
     Active Substance: TOCILIZUMAB
     Dosage: 162 MILLIGRAM, QW
     Route: 058
     Dates: start: 20190801, end: 20201119
  6. LYRICA [Concomitant]
     Active Substance: PREGABALIN
     Dosage: 50 MILLIGRAM
  7. PREDNISOLONE. [Suspect]
     Active Substance: PREDNISOLONE
     Indication: RHEUMATOID ARTHRITIS
     Dosage: 1 MILLIGRAM
     Route: 048
  8. ROACTEMRA [Suspect]
     Active Substance: TOCILIZUMAB
     Dosage: 162 MILLIGRAM, QW (PEN)
     Route: 058
     Dates: start: 20190704
  9. METOPROLOL. [Concomitant]
     Active Substance: METOPROLOL
     Dosage: UNK
  10. ALPHACALCIDOL [Concomitant]
     Active Substance: ALFACALCIDOL
     Dosage: UNK
  11. TRAMAGIT [Concomitant]
     Dosage: 185 MILLIGRAM, BID
  12. PNEUMOVAX NOS [Suspect]
     Active Substance: PNEUMOCOCCAL VACCINE POLYVALENT
     Indication: PRODUCT USED FOR UNKNOWN INDICATION
     Dosage: UNK
     Route: 065
     Dates: start: 20210211
  13. ROACTEMRA [Suspect]
     Active Substance: TOCILIZUMAB
     Dosage: 162 MILLIGRAM, QW
     Route: 058
     Dates: start: 20201203
  14. SIMVASTATIN. [Concomitant]
     Active Substance: SIMVASTATIN
     Dosage: UNK
  15. PREDNISOLONE. [Suspect]
     Active Substance: PREDNISOLONE
     Dosage: REDUCED DOSE TO LESS THAN 2 MG PER DAY
     Route: 048
  16. TELMISARTAN. [Concomitant]
     Active Substance: TELMISARTAN
     Dosage: UNK
  17. LYRICA [Concomitant]
     Active Substance: PREGABALIN
     Dosage: 50 MILLIGRAM, QD (DAYS)

REACTIONS (20)
  - Heart valve incompetence [Not Recovered/Not Resolved]
  - Arthropathy [Not Recovered/Not Resolved]
  - Joint destruction [Not Recovered/Not Resolved]
  - Feeling hot [Recovered/Resolved]
  - Nasopharyngitis [Recovered/Resolved]
  - Malaise [Recovered/Resolved]
  - Vitamin D deficiency [Recovered/Resolved]
  - Peripheral swelling [Recovered/Resolved]
  - Arthralgia [Not Recovered/Not Resolved]
  - Ill-defined disorder [Recovered/Resolved]
  - Dizziness [Recovered/Resolved]
  - Injection site erythema [Recovered/Resolved]
  - Lenticular opacities [Not Recovered/Not Resolved]
  - Alopecia [Not Recovered/Not Resolved]
  - Back pain [Not Recovered/Not Resolved]
  - Cough [Recovered/Resolved]
  - Injection site swelling [Recovered/Resolved]
  - Dyspnoea [Not Recovered/Not Resolved]
  - Peripheral swelling [Not Recovered/Not Resolved]
  - Therapeutic product effect decreased [Recovered/Resolved]

NARRATIVE: CASE EVENT DATE: 20140620
